FAERS Safety Report 12329695 (Version 4)
Quarter: 2016Q3

REPORT INFORMATION
  Report Type: Spontaneous
  Country: US (occurrence: US)
  Receive Date: 20160503
  Receipt Date: 20160804
  Transmission Date: 20161109
  Serious: Yes (Hospitalization, Other)
  Sender: FDA-Public Use
  Company Number: US-ABBVIE-11P-163-0804656-00

PATIENT
  Age: 66 Year
  Sex: Male
  Weight: 95 kg

DRUGS (9)
  1. FORTESTA [Suspect]
     Active Substance: TESTOSTERONE
     Indication: ANDROGEN REPLACEMENT THERAPY
     Route: 065
     Dates: start: 200308, end: 201501
  2. ANDROGEL 1% [Suspect]
     Active Substance: TESTOSTERONE
     Indication: ANDROGEN REPLACEMENT THERAPY
  3. ANDRODERM [Suspect]
     Active Substance: TESTOSTERONE
     Indication: ANDROGEN REPLACEMENT THERAPY
     Dosage: 2MG/DAY TRANSDERMAL SYSTEM
     Route: 062
     Dates: start: 200308, end: 201501
  4. LISINOPRIL. [Concomitant]
     Active Substance: LISINOPRIL
     Indication: PRODUCT USED FOR UNKNOWN INDICATION
     Dosage: DAILY DOSE: 10 MILLIGRAM(S)
     Route: 065
  5. ANDROGEL 1% [Suspect]
     Active Substance: TESTOSTERONE
     Indication: MALE GENITAL EXAMINATION ABNORMAL
     Dosage: DAILY DOSE: 5 GRAM(S)
     Route: 061
     Dates: start: 1999, end: 201501
  6. SIMVASTATIN. [Concomitant]
     Active Substance: SIMVASTATIN
     Indication: PRODUCT USED FOR UNKNOWN INDICATION
     Dosage: DAILY DOSE: 40 MILLIGRAM(S)
     Route: 065
  7. HYDROCHLOROTHIAZIDE. [Concomitant]
     Active Substance: HYDROCHLOROTHIAZIDE
     Indication: PRODUCT USED FOR UNKNOWN INDICATION
     Dosage: DAILY DOSE: 25 MILLIGRAM(S)
     Route: 065
  8. DIVALPROEX SODIUM. [Concomitant]
     Active Substance: DIVALPROEX SODIUM
     Indication: PRODUCT USED FOR UNKNOWN INDICATION
     Dosage: DAILY DOSE:  UNKNOWN
     Route: 065
  9. ANDROGEL [Concomitant]
     Active Substance: TESTOSTERONE
     Indication: PRODUCT USED FOR UNKNOWN INDICATION
     Dosage: DAILY DOSE:  UNKNOWN, FREQUENCY: EVERY TWO WEEKS
     Route: 065

REACTIONS (12)
  - Intracranial aneurysm [Unknown]
  - Visual acuity reduced [Not Recovered/Not Resolved]
  - Loss of libido [Not Recovered/Not Resolved]
  - Seizure [Recovered/Resolved]
  - Intracranial aneurysm [Recovered/Resolved]
  - Drug ineffective [Not Recovered/Not Resolved]
  - Neurological symptom [Not Recovered/Not Resolved]
  - Visual field defect [Recovered/Resolved]
  - Thrombosis [Recovered/Resolved]
  - Cerebrovascular accident [Recovered/Resolved]
  - Erectile dysfunction [Not Recovered/Not Resolved]
  - Cerebrovascular accident [Recovered/Resolved]

NARRATIVE: CASE EVENT DATE: 1999
